FAERS Safety Report 20061359 (Version 1)
Quarter: 2021Q4

REPORT INFORMATION
  Report Type: Spontaneous
  Country: CA (occurrence: CA)
  Receive Date: 20211112
  Receipt Date: 20211112
  Transmission Date: 20220303
  Serious: Yes (Other)
  Sender: FDA-Public Use
  Company Number: CA-TEVA-2021-CA-1975921

PATIENT
  Age: 58 Year
  Sex: Male

DRUGS (1)
  1. VORICONAZOLE [Suspect]
     Active Substance: VORICONAZOLE
     Indication: Pulmonary mucormycosis
     Route: 065

REACTIONS (3)
  - Delirium [Unknown]
  - Hallucination, visual [Unknown]
  - Postoperative delirium [Unknown]
